FAERS Safety Report 5526973-1 (Version None)
Quarter: 2007Q4

REPORT INFORMATION
  Report Type: 
  Country: None (occurrence: None)
  Receive Date: 20071127
  Receipt Date: 20071115
  Transmission Date: 20080405
  Serious: Yes (Hospitalization, Other)
  Sender: FDA-Public Use
  Company Number: PFIZER INC-2007097601

PATIENT
  Sex: Female
  Weight: 63.636 kg

DRUGS (4)
  1. CHANTIX [Suspect]
     Indication: SMOKING CESSATION THERAPY
     Dates: start: 20070801, end: 20071022
  2. VYTORIN [Concomitant]
  3. TOPROL-XL [Concomitant]
  4. PLAVIX [Concomitant]

REACTIONS (7)
  - BALANCE DISORDER [None]
  - CEREBROVASCULAR ACCIDENT [None]
  - FATIGUE [None]
  - HYPOAESTHESIA [None]
  - SKIN DISCOLOURATION [None]
  - TRANSIENT ISCHAEMIC ATTACK [None]
  - UPPER EXTREMITY MASS [None]
